FAERS Safety Report 12146945 (Version 1)
Quarter: 2016Q1

REPORT INFORMATION
  Report Type: Spontaneous
  Country: FR (occurrence: FR)
  Receive Date: 20160304
  Receipt Date: 20160304
  Transmission Date: 20160526
  Serious: Yes (Death, Other)
  Sender: FDA-Public Use
  Company Number: FR-BAXTER-2016BAX009281

PATIENT
  Age: 56 Year
  Sex: Female

DRUGS (16)
  1. METHYLPREDNISOLONE. [Concomitant]
     Active Substance: METHYLPREDNISOLONE
     Indication: PRODUCT USED FOR UNKNOWN INDICATION
     Dosage: ON D1
     Route: 065
     Dates: start: 20090331, end: 20090713
  2. ZOPHREN [Concomitant]
     Active Substance: ONDANSETRON
     Indication: PRODUCT USED FOR UNKNOWN INDICATION
     Dosage: ON D1
     Route: 065
     Dates: start: 20090331, end: 20090713
  3. UROMITEXAN 1 G/10 ML, SOLUTION INJECTABLE POUR PERFUSION EN FLACON [Suspect]
     Active Substance: MESNA
     Indication: PRODUCT USED FOR UNKNOWN INDICATION
     Route: 065
     Dates: start: 20090331, end: 20090713
  4. HOLOXAN 2000 MG, POUDRE POUR USAGE PARENT?RAL [Suspect]
     Active Substance: IFOSFAMIDE
     Indication: UTERINE LEIOMYOSARCOMA
     Dosage: 5 G/M2 (6 COURSES OF CHEMO, TOTAL 10 GM PER COURSE)
     Route: 042
     Dates: start: 20090331, end: 20090713
  5. YONDELIS [Suspect]
     Active Substance: TRABECTEDIN
     Dosage: 6 COURSES AT A DOSAGE OF 2.4 MG PER COURSE EVERY 3 WEEKS
     Route: 042
     Dates: end: 20131106
  6. HOLOXAN 2000 MG, POUDRE POUR USAGE PARENT?RAL [Suspect]
     Active Substance: IFOSFAMIDE
     Indication: LEIOMYOSARCOMA METASTATIC
  7. YONDELIS [Suspect]
     Active Substance: TRABECTEDIN
     Indication: LEIOMYOSARCOMA METASTATIC
     Dosage: 3 COURSES, TOTAL 3 MG EVERY 3 WEEKS
     Route: 042
     Dates: end: 20111216
  8. YONDELIS [Suspect]
     Active Substance: TRABECTEDIN
     Dosage: 8 COURSES WITH REDUCED DOSAGE OF 2.4 MG
     Route: 042
     Dates: end: 20130204
  9. DOXORUBICIN HYDROCHLORIDE. [Suspect]
     Active Substance: DOXORUBICIN HYDROCHLORIDE
     Indication: LEIOMYOSARCOMA METASTATIC
  10. EMEND [Concomitant]
     Active Substance: APREPITANT
     Indication: PRODUCT USED FOR UNKNOWN INDICATION
     Dosage: 125 MG ON D1 AND 80 MG ON D2 AND D3
     Route: 065
     Dates: start: 20090331, end: 20090713
  11. YONDELIS [Suspect]
     Active Substance: TRABECTEDIN
     Indication: UTERINE LEIOMYOSARCOMA
     Dosage: 6 COURSES, TOTAL 3 MG PER COURSE
     Route: 042
     Dates: end: 20110615
  12. GEMCITABINE KABI [Suspect]
     Active Substance: GEMCITABINE HYDROCHLORIDE
     Indication: UTERINE LEIOMYOSARCOMA
     Dosage: 1 G/M2 (TOTAL 2 G ON D1, D8 AND D15)
     Route: 042
     Dates: end: 20141212
  13. GEMCITABINE KABI [Suspect]
     Active Substance: GEMCITABINE HYDROCHLORIDE
     Indication: LEIOMYOSARCOMA METASTATIC
  14. GRANOCYTE [Concomitant]
     Active Substance: LENOGRASTIM
     Indication: PRODUCT USED FOR UNKNOWN INDICATION
     Dosage: 34 MIU FROM D3 TO D8
     Route: 065
     Dates: start: 20090331, end: 20090713
  15. DOXORUBICIN HYDROCHLORIDE. [Suspect]
     Active Substance: DOXORUBICIN HYDROCHLORIDE
     Indication: UTERINE LEIOMYOSARCOMA
     Dosage: 6 COURSES OF CHEMO, TOTAL 100 MG PER COURSE
     Route: 042
     Dates: start: 20090331, end: 20090713
  16. METFORMIN [Concomitant]
     Active Substance: METFORMIN HYDROCHLORIDE
     Indication: TYPE 2 DIABETES MELLITUS
     Route: 065

REACTIONS (3)
  - Malignant neoplasm progression [Unknown]
  - Acute myeloid leukaemia [Fatal]
  - Haematotoxicity [Unknown]

NARRATIVE: CASE EVENT DATE: 201001
